FAERS Safety Report 10091545 (Version 2)
Quarter: 2015Q3

REPORT INFORMATION
  Report Type: Spontaneous
  Country: US (occurrence: US)
  Receive Date: 20140421
  Receipt Date: 20150813
  Transmission Date: 20151125
  Serious: No
  Sender: FDA-Public Use
  Company Number: US-GILEAD-2013-0069132

PATIENT
  Age: 48 Year
  Sex: Male

DRUGS (2)
  1. LETAIRIS [Suspect]
     Active Substance: AMBRISENTAN
     Indication: PRODUCT USED FOR UNKNOWN INDICATION
     Dosage: 10 MG, UNK
     Route: 048
     Dates: start: 20110921
  2. MUCINEX [Suspect]
     Active Substance: GUAIFENESIN

REACTIONS (3)
  - Productive cough [Unknown]
  - Dyspnoea [Unknown]
  - Malaise [Unknown]

NARRATIVE: CASE EVENT DATE: 20130128
